FAERS Safety Report 5541927-7 (Version None)
Quarter: 2007Q4

REPORT INFORMATION
  Report Type: 
  Country: None (occurrence: None)
  Receive Date: 20071210
  Receipt Date: 20071204
  Transmission Date: 20080405
  Serious: Yes (Other)
  Sender: FDA-Public Use
  Company Number: IE-ABBOTT-07P-229-0423216-00

PATIENT
  Age: 39 Year
  Sex: Female

DRUGS (3)
  1. REDUCTIL [Suspect]
     Indication: WEIGHT INCREASED
     Route: 048
     Dates: start: 20070920
  2. CITALOPRAM HYDROBROMIDE [Concomitant]
     Indication: DRUG USE FOR UNKNOWN INDICATION
  3. RISPERIDONE [Concomitant]
     Indication: DRUG USE FOR UNKNOWN INDICATION

REACTIONS (2)
  - PARANOIA [None]
  - PSYCHOTIC DISORDER [None]
